FAERS Safety Report 9894221 (Version 2)
Quarter: 2014Q1

REPORT INFORMATION
  Report Type: Spontaneous
  Country: US (occurrence: US)
  Receive Date: 20140213
  Receipt Date: 20140213
  Transmission Date: 20141002
  Serious: Yes (Hospitalization)
  Sender: FDA-Public Use
  Company Number: US-GLAXOSMITHKLINE-A0787980A

PATIENT
  Age: 53 Year
  Sex: Female
  Weight: 102.3 kg

DRUGS (1)
  1. AVANDIA [Suspect]
     Indication: TYPE 2 DIABETES MELLITUS
     Dosage: 4MG PER DAY
     Route: 048
     Dates: start: 1999, end: 2008

REACTIONS (11)
  - Brain injury [Not Recovered/Not Resolved]
  - Cerebrovascular accident [Unknown]
  - Concussion [Unknown]
  - Cardiac disorder [Unknown]
  - Nerve injury [Unknown]
  - Clavicle fracture [Unknown]
  - Injury [Unknown]
  - Road traffic accident [Unknown]
  - Anxiety [Unknown]
  - Bipolar disorder [Unknown]
  - Amnesia [Unknown]
